FAERS Safety Report 9496576 (Version 1)
Quarter: 2013Q3

REPORT INFORMATION
  Report Type: Report from Study
  Country: US (occurrence: US)
  Receive Date: 20130904
  Receipt Date: 20130904
  Transmission Date: 20140515
  Serious: Yes (Other)
  Sender: FDA-Public Use
  Company Number: US-ROCHE-1269983

PATIENT
  Sex: Female

DRUGS (1)
  1. RITUXAN [Suspect]
     Indication: PRODUCT USED FOR UNKNOWN INDICATION
     Dosage: STARTED AT 1015 AND ENDED AT 1347
     Route: 042
     Dates: start: 20130829, end: 20130829

REACTIONS (3)
  - Depression [Unknown]
  - Thrombosis [Unknown]
  - Arthralgia [Unknown]
